FAERS Safety Report 8243300-X (Version None)
Quarter: 2012Q1

REPORT INFORMATION
  Report Type: 
  Country: None (occurrence: None)
  Receive Date: 20120329
  Receipt Date: 20120321
  Transmission Date: 20120608
  Serious: Yes (Hospitalization)
  Sender: FDA-Public Use
  Company Number: JP-ROCHE-1040410

PATIENT
  Age: 38 Year
  Sex: Female

DRUGS (4)
  1. OMALIZUMAB [Suspect]
     Indication: ASTHMA
     Route: 058
     Dates: start: 20120209, end: 20120209
  2. SYMBICORT [Concomitant]
  3. MUCOSTA [Concomitant]
  4. BETAMETHASONE [Concomitant]

REACTIONS (1)
  - ANAPHYLACTIC REACTION [None]
